FAERS Safety Report 4672830-2 (Version None)
Quarter: 2005Q2

REPORT INFORMATION
  Report Type: 
  Country: None (occurrence: None)
  Receive Date: 20050524
  Receipt Date: 20050512
  Transmission Date: 20051028
  Serious: Yes (Other)
  Sender: FDA-Public Use
  Company Number: PHBS2005BE06924

PATIENT
  Age: 60 Year
  Sex: Female

DRUGS (3)
  1. ZOMETA [Suspect]
     Indication: METASTASES TO BONE
     Route: 042
     Dates: start: 20031203
  2. 5-FU + EPIRUBICIN + CYCLOPHOSPHAMIDE [Concomitant]
     Route: 065
     Dates: start: 20031022, end: 20040201
  3. TAMOXIFEN [Concomitant]
     Route: 065
     Dates: start: 20040301

REACTIONS (2)
  - ASEPTIC NECROSIS BONE [None]
  - TOOTH ABSCESS [None]
